FAERS Safety Report 10866941 (Version 4)
Quarter: 2015Q3

REPORT INFORMATION
  Report Type: Spontaneous
  Country: DE (occurrence: DE)
  Receive Date: 20150225
  Receipt Date: 20150721
  Transmission Date: 20151125
  Serious: Yes (Death, Other)
  Sender: FDA-Public Use
  Company Number: DE-UNITED THERAPEUTICS-UNT-2015-001877

PATIENT
  Age: 61 Year
  Sex: Female
  Weight: 55 kg

DRUGS (1)
  1. REMODULIN [Suspect]
     Active Substance: TREPROSTINIL
     Indication: PRODUCT USED FOR UNKNOWN INDICATION
     Dosage: 0.0365 ?G/KG
     Route: 058
     Dates: start: 201204

REACTIONS (3)
  - Pneumonia [Unknown]
  - Death [Fatal]
  - Hypokalaemia [Unknown]

NARRATIVE: CASE EVENT DATE: 20150213
